FAERS Safety Report 21335216 (Version 3)
Quarter: 2022Q3

REPORT INFORMATION
  Report Type: Spontaneous
  Country: JP (occurrence: JP)
  Receive Date: 20220915
  Receipt Date: 20220921
  Transmission Date: 20221026
  Serious: Yes (Other)
  Sender: FDA-Public Use
  Company Number: JP-NOVARTISPH-NVSC2022JP207429

PATIENT
  Age: 8 Decade
  Sex: Female

DRUGS (2)
  1. ETOPOSIDE [Suspect]
     Active Substance: ETOPOSIDE
     Indication: Neuroendocrine carcinoma metastatic
     Dosage: 100 MG/M2, CYCLIC (6 CYCLES) ON DAYS 1 TO 3, WITH 21 DAYS AS A CYCLE
     Route: 065
  2. CARBOPLATIN [Suspect]
     Active Substance: CARBOPLATIN
     Indication: Neuroendocrine carcinoma metastatic
     Dosage: 5 X (GFR PLUS 25) MG/BODY, CYCLIC (6 CYCLES) ON DAY 1 WITH 21 DAYS AS A CYCLE
     Route: 065

REACTIONS (4)
  - Neuroendocrine carcinoma metastatic [Unknown]
  - Malignant neoplasm progression [Unknown]
  - Condition aggravated [Unknown]
  - Product use in unapproved indication [Unknown]
